FAERS Safety Report 6439798-X (Version None)
Quarter: 2009Q4

REPORT INFORMATION
  Report Type: 
  Country: None (occurrence: None)
  Receive Date: 20091113
  Receipt Date: 20091110
  Transmission Date: 20100525
  Serious: Yes (Death, Life-Threatening, Other)
  Sender: FDA-Public Use
  Company Number: ES-MERCK-0906ESP00026

PATIENT
  Age: 49 Year
  Sex: Male

DRUGS (3)
  1. CANCIDAS [Suspect]
     Indication: ENDOCARDITIS CANDIDA
     Route: 042
     Dates: start: 20081209, end: 20090121
  2. AMPHOTERICIN B AND CHOLESTEROL AND DISTEAROYLPHOSPHATIDYLGLYCEROL AND [Concomitant]
     Indication: ENDOCARDITIS CANDIDA
     Route: 042
     Dates: start: 20081204, end: 20081209
  3. VORICONAZOLE [Concomitant]
     Indication: ENDOCARDITIS CANDIDA
     Route: 065
     Dates: start: 20081209

REACTIONS (6)
  - CEREBRAL INFARCTION [None]
  - CEREBROVASCULAR ACCIDENT [None]
  - DEVICE RELATED INFECTION [None]
  - DRUG INEFFECTIVE [None]
  - ENDOCARDITIS ENTEROCOCCAL [None]
  - OVERDOSE [None]
